FAERS Safety Report 9632370 (Version 9)
Quarter: 2015Q3

REPORT INFORMATION
  Report Type: Spontaneous
  Country: US (occurrence: US)
  Receive Date: 20131018
  Receipt Date: 20150701
  Transmission Date: 20151125
  Serious: Yes (Hospitalization, Disabling, Other)
  Sender: FDA-Public Use
  Company Number: US-009507513-1008USA04176

PATIENT
  Sex: Female
  Weight: 71.66 kg

DRUGS (4)
  1. FOSAMAX [Suspect]
     Active Substance: ALENDRONATE SODIUM
     Indication: OSTEOPOROSIS
     Dosage: 35 MG, QW
     Route: 048
     Dates: start: 20060313, end: 2010
  2. FOSAMAX [Suspect]
     Active Substance: ALENDRONATE SODIUM
     Dosage: UNK
     Route: 048
  3. FOSAMAX [Suspect]
     Active Substance: ALENDRONATE SODIUM
     Dosage: 70 MG, UNK
     Route: 048
     Dates: start: 20070412
  4. ALENDRONATE SODIUM. [Suspect]
     Active Substance: ALENDRONATE SODIUM
     Indication: PRODUCT USED FOR UNKNOWN INDICATION
     Dosage: UNK
     Route: 048
     Dates: start: 200901, end: 2010

REACTIONS (74)
  - Hip arthroplasty [Unknown]
  - Bipolar disorder [Unknown]
  - Accident at home [Unknown]
  - Peripheral swelling [Unknown]
  - Asthma [Unknown]
  - Hypoaesthesia [Unknown]
  - Muscular weakness [Unknown]
  - Cervical vertebral fracture [Unknown]
  - Asthenia [Unknown]
  - Muscle spasms [Unknown]
  - Dizziness [Unknown]
  - Intervertebral disc degeneration [Unknown]
  - Intervertebral disc displacement [Unknown]
  - Migraine [Unknown]
  - Radius fracture [Unknown]
  - Acute sinusitis [Unknown]
  - Overdose [Recovering/Resolving]
  - Limb asymmetry [Unknown]
  - Pneumonia [Unknown]
  - Measles [Unknown]
  - Femur fracture [Unknown]
  - Myocardial infarction [Unknown]
  - Rotator cuff repair [Unknown]
  - Anxiety disorder [Unknown]
  - Eye disorder [Unknown]
  - Urinary incontinence [Unknown]
  - Varicella [Unknown]
  - Spinal osteoarthritis [Unknown]
  - Spinal disorder [Unknown]
  - Shoulder operation [Unknown]
  - Pain in extremity [Unknown]
  - Open reduction of fracture [Unknown]
  - Loss of consciousness [Unknown]
  - Syncope [Unknown]
  - Peroneal nerve palsy [Unknown]
  - Traumatic arthropathy [Unknown]
  - Back pain [Not Recovered/Not Resolved]
  - Back pain [Unknown]
  - Anaemia [Unknown]
  - Hip arthroplasty [Unknown]
  - Fibromyalgia [Unknown]
  - Musculoskeletal disorder [Unknown]
  - Skull fracture [Unknown]
  - Upper limb fracture [Unknown]
  - Neuralgia [Not Recovered/Not Resolved]
  - Ulcer [Unknown]
  - Hypothermia [Recovering/Resolving]
  - Arthropathy [Unknown]
  - Femur fracture [Unknown]
  - Intramedullary rod insertion [Unknown]
  - Intrathecal pump insertion [Unknown]
  - Adverse event [Unknown]
  - Knee arthroplasty [Unknown]
  - Pain [Not Recovered/Not Resolved]
  - Sinus congestion [Unknown]
  - Thyroid disorder [Unknown]
  - Rib fracture [Unknown]
  - Depression [Unknown]
  - Muscular weakness [Unknown]
  - Musculoskeletal chest pain [Unknown]
  - Constipation [Unknown]
  - Constipation [Unknown]
  - Femur fracture [Unknown]
  - Shoulder arthroplasty [Unknown]
  - Spinal laminectomy [Unknown]
  - Essential hypertension [Unknown]
  - Osteoarthritis [Unknown]
  - Head injury [Unknown]
  - Appendicectomy [Unknown]
  - Carpal tunnel syndrome [Unknown]
  - Coronary artery disease [Unknown]
  - Rheumatoid arthritis [Unknown]
  - Upper limb fracture [Unknown]
  - Bone pain [Unknown]

NARRATIVE: CASE EVENT DATE: 1999
